FAERS Safety Report 8802254 (Version 2)
Quarter: 2012Q4

REPORT INFORMATION
  Report Type: 
  Country: US (occurrence: US)
  Receive Date: 20120921
  Receipt Date: 20121011
  Transmission Date: 20130627
  Serious: Yes (Death, Other)
  Sender: FDA-Public Use
  Company Number: US-ROCHE-1126494

PATIENT
  Sex: Male

DRUGS (4)
  1. AVASTIN [Suspect]
     Indication: LUNG NEOPLASM MALIGNANT
     Route: 042
     Dates: start: 20080918, end: 20081031
  2. PREDNISONE [Concomitant]
     Route: 065
  3. DULCOLAX TABLET [Concomitant]
     Route: 065
  4. MILK OF MAGNESIA [Concomitant]
     Route: 065

REACTIONS (2)
  - Death [Fatal]
  - Neutropenia [Unknown]
